FAERS Safety Report 18018443 (Version 2)
Quarter: 2022Q4

REPORT INFORMATION
  Report Type: Report from Study
  Country: FR (occurrence: FR)
  Receive Date: 20200714
  Receipt Date: 20221201
  Transmission Date: 20230113
  Serious: Yes (Death, Other)
  Sender: FDA-Public Use
  Company Number: FR-JNJFOC-20200709898

PATIENT
  Age: 52 Year
  Sex: Female

DRUGS (3)
  1. BORTEZOMIB [Suspect]
     Active Substance: BORTEZOMIB
     Indication: Plasma cell myeloma
     Dosage: 2.5 MILLIGRAM
     Route: 065
     Dates: end: 20171222
  2. DEXAMETHASONE [Suspect]
     Active Substance: DEXAMETHASONE
     Indication: Plasma cell myeloma
     Dosage: 40 MILLIGRAM
     Route: 065
     Dates: end: 20171222
  3. BENDAMUSTINE [Suspect]
     Active Substance: BENDAMUSTINE
     Indication: Plasma cell myeloma
     Dosage: 130 MILLIGRAM, 1/WEEK
     Route: 065
     Dates: end: 20171222

REACTIONS (3)
  - Plasma cell myeloma [Fatal]
  - Product use issue [Unknown]
  - Off label use [Unknown]
